FAERS Safety Report 22040243 (Version 8)
Quarter: 2023Q2

REPORT INFORMATION
  Report Type: Spontaneous
  Country: US (occurrence: US)
  Receive Date: 20230227
  Receipt Date: 20230524
  Transmission Date: 20230722
  Serious: No
  Sender: FDA-Public Use
  Company Number: US-PFIZER INC-PV202300032822

PATIENT
  Age: 13 Year
  Sex: Male
  Weight: 40.82 kg

DRUGS (2)
  1. GENOTROPIN [Suspect]
     Active Substance: SOMATROPIN
     Indication: Growth hormone deficiency
     Dosage: 2.2 MG
     Dates: start: 202301
  2. GENOTROPIN [Suspect]
     Active Substance: SOMATROPIN
     Dosage: 2.2 MG (NIGHTLY)

REACTIONS (2)
  - Device difficult to use [Unknown]
  - Device physical property issue [Unknown]

NARRATIVE: CASE EVENT DATE: 20230101
